FAERS Safety Report 9144365 (Version 2)
Quarter: 2013Q2

REPORT INFORMATION
  Report Type: Spontaneous
  Country: DK (occurrence: SE)
  Receive Date: 20130306
  Receipt Date: 20130530
  Transmission Date: 20140414
  Serious: Yes (Life-Threatening, Hospitalization)
  Sender: FDA-Public Use
  Company Number: SE-FRI-1000043130

PATIENT
  Age: 21 Year
  Sex: Male

DRUGS (1)
  1. ESCITALOPRAM [Suspect]
     Route: 048
     Dates: start: 201211

REACTIONS (3)
  - Personality change [Unknown]
  - Suicidal ideation [Unknown]
  - Suicide attempt [Unknown]
